FAERS Safety Report 18586081 (Version 1)
Quarter: 2020Q4

REPORT INFORMATION
  Report Type: Report from Study
  Country: BR (occurrence: BR)
  Receive Date: 20201207
  Receipt Date: 20201207
  Transmission Date: 20210114
  Serious: Yes (Life-Threatening, Other)
  Sender: FDA-Public Use
  Company Number: NVSC2020BR325143

PATIENT
  Age: 81 Year
  Sex: Male

DRUGS (1)
  1. DIOVAN AMLO FIX [Suspect]
     Active Substance: AMLODIPINE\VALSARTAN
     Indication: HYPERTENSION
     Dosage: 1 DF, BID (160/5-28) FROM 28 OR 30 YEARS
     Route: 065

REACTIONS (11)
  - Fall [Unknown]
  - Feeling abnormal [Unknown]
  - Near death experience [Unknown]
  - Upper limb fracture [Unknown]
  - Arterial occlusive disease [Unknown]
  - Hypoacusis [Not Recovered/Not Resolved]
  - Blood cholesterol abnormal [Unknown]
  - Clavicle fracture [Unknown]
  - Language disorder [Unknown]
  - Dry skin [Unknown]
  - Movement disorder [Unknown]

NARRATIVE: CASE EVENT DATE: 20200911
